FAERS Safety Report 7041735-4 (Version None)
Quarter: 2010Q4

REPORT INFORMATION
  Report Type: 
  Country: None (occurrence: None)
  Receive Date: 20101013
  Receipt Date: 20090831
  Transmission Date: 20110411
  Serious: No
  Sender: FDA-Public Use
  Company Number: US-ASTRAZENECA-2009SE05231

PATIENT
  Age: 36 Year
  Sex: Female
  Weight: 52.2 kg

DRUGS (1)
  1. SYMBICORT [Suspect]
     Indication: MULTIPLE ALLERGIES
     Dosage: 80/4.5 120  2 PUFFS BID
     Route: 055

REACTIONS (3)
  - AGEUSIA [None]
  - DRUG INEFFECTIVE [None]
  - UPPER-AIRWAY COUGH SYNDROME [None]
